FAERS Safety Report 10661397 (Version 2)
Quarter: 2015Q1

REPORT INFORMATION
  Report Type: Report from Study
  Country: JP (occurrence: JP)
  Receive Date: 20141218
  Receipt Date: 20150223
  Transmission Date: 20150720
  Serious: Yes (Death, Other)
  Sender: FDA-Public Use
  Company Number: JP-SHIRE-JP201408844

PATIENT
  Age: 70 Year
  Sex: Male

DRUGS (13)
  1. 405 (LANTHANUM CARBONATE) [Suspect]
     Active Substance: LANTHANUM CARBONATE
     Dosage: 2250 MG, UNKNOWN DAILY DOSE
     Route: 048
     Dates: start: 20140226, end: 20140426
  2. ALFAROL [Concomitant]
     Active Substance: ALFACALCIDOL
     Indication: PRODUCT USED FOR UNKNOWN INDICATION
     Dosage: 0.25 ?G, UNKNOWN
     Route: 048
     Dates: end: 20090930
  3. ROCALTROL [Concomitant]
     Active Substance: CALCITRIOL
     Indication: PRODUCT USED FOR UNKNOWN INDICATION
     Dosage: 1 ?G, 1X/WEEK
     Route: 042
     Dates: start: 20091116
  4. NOVOLIN N [Concomitant]
     Active Substance: INSULIN HUMAN
     Indication: PRODUCT USED FOR UNKNOWN INDICATION
     Dosage: 16 IU, UNKNOWN
     Route: 065
  5. AMLODIN [Concomitant]
     Active Substance: AMLODIPINE BESYLATE
     Indication: PRODUCT USED FOR UNKNOWN INDICATION
     Dosage: 5 MG, UNKNOWN
     Route: 048
  6. 405 (LANTHANUM CARBONATE) [Suspect]
     Active Substance: LANTHANUM CARBONATE
     Indication: HYPERPHOSPHATAEMIA
     Dosage: 2250 MG, UNKNOWN DAILY DOSE
     Route: 048
     Dates: start: 20110516, end: 20140119
  7. ALFAROL [Concomitant]
     Active Substance: ALFACALCIDOL
     Dosage: 0.25 ?G, UNKNOWN
     Route: 048
     Dates: start: 20101222
  8. WARFARIN                           /00014803/ [Concomitant]
     Active Substance: WARFARIN
     Indication: PRODUCT USED FOR UNKNOWN INDICATION
     Dosage: 1.5 MG, UNKNOWN
     Route: 048
  9. 405 (LANTHANUM CARBONATE) [Suspect]
     Active Substance: LANTHANUM CARBONATE
     Dosage: 750 MG, UNKNOWN DAILY DOSE
     Route: 048
     Dates: start: 20100624, end: 20110515
  10. DIOVAN [Concomitant]
     Active Substance: VALSARTAN
     Indication: PRODUCT USED FOR UNKNOWN INDICATION
     Dosage: 40 MG, UNKNOWN
     Route: 048
  11. EPOGIN [Concomitant]
     Indication: PRODUCT USED FOR UNKNOWN INDICATION
     Dosage: 3000 UNITS, 1X/WEEK
     Route: 042
  12. CALTAN [Concomitant]
     Active Substance: CALCIUM CARBONATE
     Indication: HYPERPHOSPHATAEMIA
     Dosage: 3000 MG, UNKNOWN
     Route: 048
     Dates: end: 20140426
  13. PRAVASTATIN NA [Concomitant]
     Indication: PRODUCT USED FOR UNKNOWN INDICATION
     Dosage: 5 MG, UNKNOWN
     Route: 048

REACTIONS (3)
  - Endocarditis [Fatal]
  - Gastric cancer [Recovering/Resolving]
  - Sepsis [Fatal]

NARRATIVE: CASE EVENT DATE: 20140119
